FAERS Safety Report 4455962-3 (Version None)
Quarter: 2004Q3

REPORT INFORMATION
  Report Type: 
  Country: None (occurrence: None)
  Receive Date: 20040922
  Receipt Date: 20040920
  Transmission Date: 20050211
  Serious: Yes (Hospitalization)
  Sender: FDA-Public Use
  Company Number: US-GLAXOSMITHKLINE-A0526432A

PATIENT
  Age: 76 Year
  Sex: Male

DRUGS (1)
  1. AVANDIA [Suspect]
     Route: 048

REACTIONS (3)
  - ANAEMIA [None]
  - PLATELET COUNT DECREASED [None]
  - WHITE BLOOD CELL COUNT DECREASED [None]
